FAERS Safety Report 9679203 (Version 2)
Quarter: 2013Q4

REPORT INFORMATION
  Report Type: Spontaneous
  Country: JP (occurrence: JP)
  Receive Date: 20131108
  Receipt Date: 20131108
  Transmission Date: 20140711
  Serious: Yes (Other)
  Sender: FDA-Public Use
  Company Number: JP-ASTRAZENECA-2013SE78248

PATIENT
  Age: 29881 Day
  Sex: Female

DRUGS (6)
  1. NEXIUM [Suspect]
     Indication: GASTROOESOPHAGEAL REFLUX DISEASE
     Route: 048
     Dates: start: 20131011, end: 20131012
  2. AMLODIN OD [Concomitant]
     Indication: HYPERTENSION
     Dates: start: 20121026
  3. AZILVA [Concomitant]
     Indication: HYPERTENSION
     Dates: start: 20120622
  4. LIPITOR [Concomitant]
     Indication: HYPERLIPIDAEMIA
     Dates: start: 20120608
  5. LOTRIGA [Concomitant]
     Indication: HYPERLIPIDAEMIA
     Dates: start: 20130719
  6. CARDENALIN [Concomitant]
     Indication: HYPERTENSION
     Dates: start: 20130913

REACTIONS (3)
  - Blood pressure decreased [Recovered/Resolved]
  - Urticaria [Recovered/Resolved]
  - Chills [Recovered/Resolved]
